FAERS Safety Report 8100705-5 (Version None)
Quarter: 2012Q1

REPORT INFORMATION
  Report Type: 
  Country: None (occurrence: None)
  Receive Date: 20120129
  Receipt Date: 20111107
  Transmission Date: 20120608
  Serious: No
  Sender: FDA-Public Use
  Company Number: US-ABBOTT-11P-163-0871992-00

PATIENT
  Age: 54 Year
  Sex: Female

DRUGS (7)
  1. FOLIC ACID [Concomitant]
     Indication: PRODUCT USED FOR UNKNOWN INDICATION
  2. AMITRIPTYLINE HCL [Concomitant]
     Indication: NERVOUSNESS
  3. NORCO [Concomitant]
     Indication: BACK PAIN
  4. WELLBUTRIN SR [Concomitant]
     Indication: DEPRESSION
  5. HUMIRA [Suspect]
     Indication: PSORIATIC ARTHROPATHY
     Dates: start: 20110601
  6. LEVOTHYROXINE SODIUM [Concomitant]
     Indication: HYPOTHYROIDISM
  7. SPIRIVA [Concomitant]
     Indication: ASTHMA
     Dosage: DAILY

REACTIONS (1)
  - PAPULE [None]
